FAERS Safety Report 4860743-2 (Version None)
Quarter: 2005Q4

REPORT INFORMATION
  Report Type: 
  Country: None (occurrence: None)
  Receive Date: 20051220
  Receipt Date: 20051215
  Transmission Date: 20060501
  Serious: Yes (Other)
  Sender: FDA-Public Use
  Company Number: CH-AVENTIS-200521057GDDC

PATIENT

DRUGS (4)
  1. CORTICOSTEROIDS [Suspect]
  2. LEVOFLOXACIN [Suspect]
  3. OFLOXACIN [Suspect]
  4. CIPROFLOXACIN [Concomitant]

REACTIONS (3)
  - TENDON DISORDER [None]
  - TENDON RUPTURE [None]
  - TENDONITIS [None]
